FAERS Safety Report 13567049 (Version 1)
Quarter: 2017Q2

REPORT INFORMATION
  Report Type: Spontaneous
  Country: US (occurrence: US)
  Receive Date: 20170522
  Receipt Date: 20170522
  Transmission Date: 20170830
  Serious: No
  Sender: FDA-Public Use
  Company Number: US-DRREDDYS-USA/USA/16/0083846

PATIENT
  Age: 13 Year
  Sex: Male
  Weight: 72.57 kg

DRUGS (1)
  1. ZENATANE [Suspect]
     Active Substance: ISOTRETINOIN
     Indication: ACNE
     Route: 048

REACTIONS (4)
  - Acne [Unknown]
  - Product quality issue [Unknown]
  - Seborrhoea [Not Recovered/Not Resolved]
  - Therapeutic response unexpected [Unknown]
